FAERS Safety Report 4635781-5 (Version None)
Quarter: 2005Q2

REPORT INFORMATION
  Report Type: 
  Country: None (occurrence: None)
  Receive Date: 20050413
  Receipt Date: 20050331
  Transmission Date: 20051028
  Serious: Yes (Other)
  Sender: FDA-Public Use
  Company Number: 2005040011

PATIENT
  Age: 63 Year
  Sex: Female

DRUGS (5)
  1. IRINOTECAN HCL [Suspect]
     Indication: GASTRIC CANCER
     Dosage: 110 MG, INTRAVENOUS
     Route: 042
     Dates: start: 20050113, end: 20050127
  2. TEGAFUR (TEGAFUR) [Suspect]
     Indication: GASTRIC CANCER
     Dosage: 50 MGX2/DAY, ORAL
     Route: 048
     Dates: start: 20050113, end: 20050202
  3. OMEPRAZOLE [Concomitant]
  4. FERROUS CITRATE [Concomitant]
  5. MAGNESIUM OXIDE (MAGNESIUM OXIDE) [Concomitant]

REACTIONS (8)
  - ASTHENIA [None]
  - CARDIAC ARREST [None]
  - GASTRIC CANCER [None]
  - MALIGNANT NEOPLASM PROGRESSION [None]
  - NEUROPATHY PERIPHERAL [None]
  - OEDEMA PERIPHERAL [None]
  - RESPIRATORY ARREST [None]
  - SUDDEN DEATH [None]
